FAERS Safety Report 24883811 (Version 1)
Quarter: 2025Q1

REPORT INFORMATION
  Report Type: Spontaneous
  Country: US (occurrence: None)
  Receive Date: 20250123
  Receipt Date: 20250123
  Transmission Date: 20250409
  Serious: No
  Sender: FDA-CTU
  Company Number: None

PATIENT
  Age: 75 Year
  Sex: Male

DRUGS (2)
  1. CEFEPIME HYDROCHLORIDE [Suspect]
     Active Substance: CEFEPIME HYDROCHLORIDE
     Indication: Diabetic wound
  2. VANCOMYCIN [Concomitant]
     Active Substance: VANCOMYCIN

REACTIONS (9)
  - Chest pain [None]
  - Cough [None]
  - Troponin increased [None]
  - Burning sensation [None]
  - Somnolence [None]
  - Pallor [None]
  - Speech disorder [None]
  - Tachycardia [None]
  - Anaphylactic reaction [None]

NARRATIVE: CASE EVENT DATE: 20241227
